FAERS Safety Report 10520215 (Version 1)
Quarter: 2014Q4

REPORT INFORMATION
  Report Type: Report from Study
  Country: US (occurrence: US)
  Receive Date: 20141015
  Receipt Date: 20141015
  Transmission Date: 20150528
  Serious: Yes (Other)
  Sender: FDA-Public Use
  Company Number: US-ALEXION-A201203190

PATIENT

DRUGS (1)
  1. SOLIRIS [Suspect]
     Active Substance: ECULIZUMAB
     Indication: PAROXYSMAL NOCTURNAL HAEMOGLOBINURIA
     Dosage: UNK
     Route: 042

REACTIONS (7)
  - Abdominal pain [Unknown]
  - Aphasia [Unknown]
  - Dyspnoea [Unknown]
  - Transfusion [Unknown]
  - Fatigue [Unknown]
  - Hypotension [Unknown]
  - Dizziness [Unknown]
